FAERS Safety Report 11340875 (Version 4)
Quarter: 2015Q3

REPORT INFORMATION
  Report Type: Spontaneous
  Country: US (occurrence: US)
  Receive Date: 20150805
  Receipt Date: 20150818
  Transmission Date: 20151125
  Serious: No
  Sender: FDA-Public Use
  Company Number: US-PFIZER INC-2015259975

PATIENT
  Sex: Female

DRUGS (5)
  1. XANAX [Suspect]
     Active Substance: ALPRAZOLAM
     Dosage: UNK
  2. XANAX XR [Suspect]
     Active Substance: ALPRAZOLAM
     Dosage: 4 DF (4 TABLETS A DAY), DAILY
  3. ALPRAZOLAM. [Suspect]
     Active Substance: ALPRAZOLAM
     Dosage: UNK
  4. XANAX XR [Suspect]
     Active Substance: ALPRAZOLAM
     Dosage: UNK
  5. XANAX XR [Suspect]
     Active Substance: ALPRAZOLAM
     Dosage: 2 DF (TAKING JUST 2 TABLETS A DAY), DAILY

REACTIONS (10)
  - Drug intolerance [Unknown]
  - Drug hypersensitivity [Unknown]
  - Malaise [Unknown]
  - Nausea [Unknown]
  - Drug withdrawal syndrome [Unknown]
  - Vomiting [Unknown]
  - Neck pain [Unknown]
  - Intentional product use issue [Unknown]
  - General physical health deterioration [Unknown]
  - Drug ineffective [Unknown]
